FAERS Safety Report 14606457 (Version 2)
Quarter: 2018Q1

REPORT INFORMATION
  Report Type: Report from Study
  Country: None (occurrence: US)
  Receive Date: 20180307
  Receipt Date: 20180319
  Transmission Date: 20180509
  Serious: Yes (Hospitalization, Other)
  Sender: FDA-Public Use
  Company Number: US-ABBVIE-18K-163-2224152-00

PATIENT
  Age: 55 Year
  Sex: Female
  Weight: 52.21 kg

DRUGS (2)
  1. METHOTREXATE. [Concomitant]
     Active Substance: METHOTREXATE
     Indication: RHEUMATOID ARTHRITIS
  2. HUMIRA [Suspect]
     Active Substance: ADALIMUMAB
     Indication: RHEUMATOID ARTHRITIS
     Route: 058
     Dates: start: 20171229

REACTIONS (7)
  - Arthralgia [Unknown]
  - Pain [Recovering/Resolving]
  - Herpes zoster [Unknown]
  - Aphonia [Recovering/Resolving]
  - Pneumonia [Recovering/Resolving]
  - Immunodeficiency [Unknown]
  - Musculoskeletal pain [Unknown]

NARRATIVE: CASE EVENT DATE: 20180101
